FAERS Safety Report 5194830-9 (Version None)
Quarter: 2006Q4

REPORT INFORMATION
  Report Type: 
  Country: None (occurrence: None)
  Receive Date: 20061227
  Receipt Date: 20061208
  Transmission Date: 20070319
  Serious: Yes (Hospitalization)
  Sender: FDA-Public Use
  Company Number: 2006BI009912

PATIENT
  Age: 49 Year
  Sex: Female
  Weight: 106.1417 kg

DRUGS (11)
  1. AVONEX [Suspect]
     Indication: MULTIPLE SCLEROSIS
     Dosage: 30 UG QW IM
     Route: 030
     Dates: start: 20040401
  2. LANTUS [Concomitant]
  3. PREMARIN [Concomitant]
  4. PROTONIX [Concomitant]
  5. SPIRONOLACTONE [Concomitant]
  6. AVANDIA [Concomitant]
  7. CYMBALTA [Concomitant]
  8. NORVASC [Concomitant]
  9. LORATADINE [Concomitant]
  10. IRON [Concomitant]
  11. PREDNISONE TAB [Concomitant]

REACTIONS (5)
  - DIABETES MELLITUS [None]
  - MULTIPLE SCLEROSIS RELAPSE [None]
  - OPTIC NEURITIS RETROBULBAR [None]
  - PNEUMONIA [None]
  - RENAL CELL CARCINOMA STAGE UNSPECIFIED [None]
